FAERS Safety Report 16391666 (Version 4)
Quarter: 2021Q1

REPORT INFORMATION
  Report Type: Other
  Country: US (occurrence: US)
  Receive Date: 20190605
  Receipt Date: 20210119
  Transmission Date: 20210419
  Serious: Yes (Other)
  Sender: FDA-Public Use
  Company Number: US-ROCHE-2326612

PATIENT
  Sex: Male

DRUGS (2)
  1. OCREVUS [Suspect]
     Active Substance: OCRELIZUMAB
     Indication: RELAPSING MULTIPLE SCLEROSIS
  2. OCREVUS [Suspect]
     Active Substance: OCRELIZUMAB
     Indication: MULTIPLE SCLEROSIS
     Dosage: ON 22/MAY/2018, 22/NOV/2018, 24/MAY/2019, 26/JUN/2019, 16/DEC/2019, 29/JUN/2020 AND 04/JAN/2021, HE
     Route: 042
     Dates: start: 201804

REACTIONS (3)
  - Sinusitis [Unknown]
  - Off label use [Unknown]
  - Cryptosporidiosis infection [Unknown]
